FAERS Safety Report 8249365-3 (Version None)
Quarter: 2012Q2

REPORT INFORMATION
  Report Type: 
  Country: None (occurrence: None)
  Receive Date: 20120402
  Receipt Date: 20120321
  Transmission Date: 20120825
  Serious: No
  Sender: FDA-Public Use
  Company Number: KR-JNJFOC-20120311580

PATIENT
  Age: 6 Decade
  Sex: Female

DRUGS (1)
  1. DURAGESIC-100 [Suspect]
     Indication: PAIN
     Route: 062
     Dates: start: 20120321

REACTIONS (1)
  - INCORRECT ROUTE OF DRUG ADMINISTRATION [None]
